FAERS Safety Report 7779791-8 (Version None)
Quarter: 2011Q3

REPORT INFORMATION
  Report Type: 
  Country: None (occurrence: None)
  Receive Date: 20110927
  Receipt Date: 20110915
  Transmission Date: 20111222
  Serious: Yes (Other)
  Sender: FDA-Public Use
  Company Number: PA-JNJFOC-20110907568

PATIENT
  Age: 35 Year
  Sex: Female
  Weight: 63.5 kg

DRUGS (4)
  1. DEXAMETHASONE [Concomitant]
     Indication: PREMEDICATION
     Route: 042
  2. ACETAMINOPHEN [Concomitant]
     Indication: PREMEDICATION
     Route: 048
  3. DIPHENHYDRAMINE HCL [Concomitant]
     Indication: PREMEDICATION
     Route: 048
  4. REMICADE [Suspect]
     Indication: RHEUMATOID ARTHRITIS
     Route: 042
     Dates: start: 20100924, end: 20110910

REACTIONS (3)
  - INFUSION RELATED REACTION [None]
  - RESPIRATORY DISORDER [None]
  - DERMATITIS ALLERGIC [None]
